FAERS Safety Report 4354184-4 (Version None)
Quarter: 2004Q2

REPORT INFORMATION
  Report Type: 
  Country: None (occurrence: None)
  Receive Date: 20040503
  Receipt Date: 20040421
  Transmission Date: 20050107
  Serious: Yes (Hospitalization, Other)
  Sender: FDA-Public Use
  Company Number: GBWYE364423OCT03

PATIENT
  Age: 49 Year
  Sex: Female

DRUGS (5)
  1. ADVIL [Suspect]
     Dosage: ORAL
     Route: 048
  2. DIAZEPAM [Suspect]
     Dosage: ORAL
     Route: 048
  3. EPILIM (VALPROATE SODIUM, , 0) [Suspect]
     Dosage: 6 G; ORAL
     Route: 048
     Dates: start: 20030808, end: 20030808
  4. LANSOPRAZOLE [Suspect]
     Dosage: ORAL
     Route: 048
  5. CLOZAPINE [Concomitant]

REACTIONS (6)
  - ATAXIA [None]
  - DISTURBANCE IN ATTENTION [None]
  - FEELING HOT [None]
  - HYPERHIDROSIS [None]
  - INTENTIONAL OVERDOSE [None]
  - SOMNOLENCE [None]
